FAERS Safety Report 6395239-2 (Version None)
Quarter: 2009Q4

REPORT INFORMATION
  Report Type: 
  Country: None (occurrence: None)
  Receive Date: 20091009
  Receipt Date: 20090915
  Transmission Date: 20100525
  Serious: Yes (Other)
  Sender: FDA-Public Use
  Company Number: DE-ROCHE-654347

PATIENT
  Sex: Female
  Weight: 139 kg

DRUGS (4)
  1. CAPECITABINE [Suspect]
     Indication: BREAST CANCER
     Dosage: DAYS 1-14, ROUTE AND DOSAGE PER PROTOCOL,LAST DOSE PRIOR TO EVENT:15 SEPTEMBER 2009.
     Route: 048
     Dates: start: 20090901
  2. BEVACIZUMAB [Suspect]
     Indication: BREAST CANCER
     Dosage: DAY 1, ROUTE AND DOSAGE PER PROTOCOL.
     Route: 042
     Dates: start: 20090901
  3. VINORELBINE [Suspect]
     Indication: BREAST CANCER
     Dosage: DAYS 1+ 8, ROUTE AND DOSAGE PER PROTOCOL.
     Route: 042
     Dates: start: 20090901
  4. CLEXANE [Concomitant]
     Route: 058
     Dates: start: 20090901

REACTIONS (1)
  - CYSTITIS [None]
